FAERS Safety Report 12664671 (Version 1)
Quarter: 2016Q3

REPORT INFORMATION
  Report Type: Spontaneous
  Country: US (occurrence: US)
  Receive Date: 20160818
  Receipt Date: 20160818
  Transmission Date: 20161109
  Serious: No
  Sender: FDA-Public Use
  Company Number: US-MISSION PHARMACAL COMPANY-1056483

PATIENT
  Age: 36 Year
  Sex: Female

DRUGS (1)
  1. THIOLA [Suspect]
     Active Substance: TIOPRONIN
     Indication: NEPHROLITHIASIS
     Route: 065
     Dates: start: 20141018

REACTIONS (2)
  - Lithotripsy [Unknown]
  - Fatigue [Unknown]
